FAERS Safety Report 7405159-X (Version None)
Quarter: 2011Q2

REPORT INFORMATION
  Report Type: 
  Country: None (occurrence: None)
  Receive Date: 20110411
  Receipt Date: 20110401
  Transmission Date: 20111010
  Serious: Yes (Other)
  Sender: FDA-Public Use
  Company Number: US-BRISTOL-MYERS SQUIBB COMPANY-15454366

PATIENT
  Age: 71 Year
  Sex: Male
  Weight: 61 kg

DRUGS (10)
  1. SINTROM [Concomitant]
     Route: 048
  2. COAPROVEL TABS 300MG/ 25MG [Concomitant]
     Indication: HYPERTENSION
     Dosage: 1 DF = 1 TAB
     Route: 048
  3. NORVASC [Concomitant]
     Dosage: 1 DF = 1 TAB,NORVAS 5
     Route: 048
  4. SERTRALINE HYDROCHLORIDE [Concomitant]
     Indication: DEPRESSION
     Dosage: 1 DF = 1 TAB,SERTRALINE 50
     Route: 048
  5. SOMAZINA [Concomitant]
     Dosage: 1 DF = 1 TAB,SOMAZINA 100
     Route: 048
  6. ONGLYZA [Suspect]
     Indication: HYPERGLYCAEMIA
     Dosage: 1 DF = 1 TAB
     Route: 048
     Dates: start: 20101004, end: 20101027
  7. OMEPRAZOLE [Concomitant]
     Dosage: 1 DF = 1 TAB,OMEPRAZOLE 20
     Route: 048
  8. CRESTOR [Concomitant]
     Indication: DYSLIPIDAEMIA
     Dosage: 1 DF = 1 TAB,CRESTOR10
     Route: 048
  9. DIGOXINE [Interacting]
     Indication: ARRHYTHMIA
     Dosage: SPECIFIED IN CONMED LIST.DIGOXIN 0.25 1 DF = 1 TAB
  10. METFORMINE [Concomitant]
     Indication: TYPE 2 DIABETES MELLITUS
     Dosage: 1 DF = 1 TAB,METFORMINE 850
     Route: 048

REACTIONS (3)
  - TOXICITY TO VARIOUS AGENTS [None]
  - OEDEMA [None]
  - DRUG INTERACTION [None]
